FAERS Safety Report 9834147 (Version 1)
Quarter: 2014Q1

REPORT INFORMATION
  Report Type: Spontaneous
  Country: ES (occurrence: ES)
  Receive Date: 20140122
  Receipt Date: 20140122
  Transmission Date: 20141002
  Serious: Yes (Hospitalization)
  Sender: FDA-Public Use
  Company Number: ES-RANBAXY-2014US-77378

PATIENT
  Age: 36 Year
  Sex: Male

DRUGS (5)
  1. PARACETAMOL [Suspect]
     Indication: ABDOMINAL OPERATION
     Dosage: 1 G, TID
     Route: 042
     Dates: start: 20121107
  2. MEROPENEM [Suspect]
     Indication: ABDOMINAL OPERATION
     Dosage: 1 G, TID
     Route: 042
     Dates: start: 20121110, end: 20121113
  3. ANAGASTRA [Suspect]
     Indication: PROPHYLAXIS AGAINST GASTROINTESTINAL ULCER
     Dosage: 40 MG, QD
     Route: 048
     Dates: start: 20121107, end: 20121114
  4. NOLOTIL [Suspect]
     Indication: PAIN
     Dosage: 2 G, TID
     Route: 042
     Dates: start: 20121107, end: 20121112
  5. LORAZEPAM CINFA [Suspect]
     Indication: INSOMNIA
     Dosage: 1 MG, QD
     Route: 048
     Dates: start: 20121107, end: 20121114

REACTIONS (1)
  - Acute generalised exanthematous pustulosis [Recovered/Resolved]
